FAERS Safety Report 24797204 (Version 1)
Quarter: 2025Q1

REPORT INFORMATION
  Report Type: Spontaneous
  Country: US (occurrence: US)
  Receive Date: 20250101
  Receipt Date: 20250101
  Transmission Date: 20250409
  Serious: No
  Sender: NOVITIUM PHARMA
  Company Number: US-NOVITIUMPHARMA-2024USNVP02979

PATIENT
  Age: 18 Year
  Sex: Male
  Weight: 83.9 kg

DRUGS (4)
  1. FLUDROCORTISONE ACETATE [Suspect]
     Active Substance: FLUDROCORTISONE ACETATE
     Indication: Adrenal disorder
     Dates: start: 202401
  2. FLUDROCORTISONE ACETATE [Suspect]
     Active Substance: FLUDROCORTISONE ACETATE
     Dosage: DOSE INCREASED
  3. ASPIRIN [Concomitant]
     Active Substance: ASPIRIN
     Indication: Product used for unknown indication
  4. APREPITANT [Concomitant]
     Active Substance: APREPITANT
     Indication: Product used for unknown indication

REACTIONS (3)
  - Abnormal weight gain [Not Recovered/Not Resolved]
  - Muscle atrophy [Not Recovered/Not Resolved]
  - Skin striae [Not Recovered/Not Resolved]

NARRATIVE: CASE EVENT DATE: 20240501
